FAERS Safety Report 4799759-3 (Version None)
Quarter: 2005Q4

REPORT INFORMATION
  Report Type: 
  Country: None (occurrence: None)
  Receive Date: 20051012
  Receipt Date: 20051012
  Transmission Date: 20060501
  Serious: Yes (Hospitalization)
  Sender: FDA-Public Use
  Company Number: None

PATIENT
  Sex: Female
  Weight: 97.5234 kg

DRUGS (4)
  1. NPH INSULIN [Suspect]
     Indication: DIABETES MELLITUS
     Dosage: (THERAPY DATES: PRIOR TO ADMISSION)
  2. REGULAR INSULIN [Suspect]
     Indication: DIABETES MELLITUS
     Dosage: (THERAPY DATES: PRIOR TO ADMISSION)
  3. SYNTHROID [Concomitant]
  4. BIRTH CONTROL PILLS [Concomitant]

REACTIONS (2)
  - BLOOD GLUCOSE DECREASED [None]
  - FEELING ABNORMAL [None]
